FAERS Safety Report 15416942 (Version 1)
Quarter: 2018Q3

REPORT INFORMATION
  Report Type: Report from Study
  Country: US (occurrence: US)
  Receive Date: 20180924
  Receipt Date: 20180924
  Transmission Date: 20181010
  Serious: Yes (Hospitalization)
  Sender: FDA-Public Use
  Company Number: US-BRISTOL-MYERS SQUIBB COMPANY-BMS-2018-088182

PATIENT
  Age: 69 Year
  Sex: Female

DRUGS (3)
  1. CABOZANTINIB [Suspect]
     Active Substance: CABOZANTINIB
     Indication: RENAL CANCER
     Dosage: 60 MG, QD, (EVERY MORNING)
     Route: 048
     Dates: start: 20180702, end: 20180706
  2. NIVOLUMAB [Suspect]
     Active Substance: NIVOLUMAB
     Indication: RENAL CANCER
     Dosage: UNK
     Route: 065
     Dates: end: 201806
  3. CABOZANTINIB [Suspect]
     Active Substance: CABOZANTINIB
     Indication: PRODUCT USED FOR UNKNOWN INDICATION
     Dosage: 60 MG, QD, (EVERY MORNING)
     Route: 048
     Dates: start: 20180716

REACTIONS (7)
  - Blood pressure increased [Unknown]
  - Glossodynia [Unknown]
  - Blood glucose fluctuation [Recovering/Resolving]
  - Dry skin [Unknown]
  - Skin ulcer [Unknown]
  - Tongue discolouration [Unknown]
  - Pruritus [Recovering/Resolving]

NARRATIVE: CASE EVENT DATE: 201807
